FAERS Safety Report 4725430-X (Version None)
Quarter: 2005Q3

REPORT INFORMATION
  Report Type: 
  Country: None (occurrence: None)
  Receive Date: 20050721
  Receipt Date: 20050601
  Transmission Date: 20060218
  Serious: No
  Sender: FDA-Public Use
  Company Number: 2005SP001154

PATIENT
  Age: 62 Year
  Sex: Female
  Weight: 57.1532 kg

DRUGS (1)
  1. LUNESTA [Suspect]
     Dosage: 3 MG;HS;ORAL
     Route: 048
     Dates: start: 20050527

REACTIONS (2)
  - DRUG INEFFECTIVE [None]
  - INSOMNIA [None]
